FAERS Safety Report 20670680 (Version 1)
Quarter: 2022Q2

REPORT INFORMATION
  Report Type: Spontaneous
  Country: US (occurrence: None)
  Receive Date: 20220401
  Receipt Date: 20220401
  Transmission Date: 20220721
  Serious: No
  Sender: FDA-Public Use
  Company Number: None

PATIENT
  Sex: Female

DRUGS (1)
  1. ICATIBANT ACETATE [Suspect]
     Active Substance: ICATIBANT ACETATE
     Indication: Complement deficiency disease
     Dosage: AS NEEDED FOR HEREDITARY ANGIOEDEMA ATTACKS. IF NEEDED INJECT ONE ADDITIONAL SYRINGE AT ?6 HOUR INTE
     Route: 058
     Dates: start: 20201222

REACTIONS (4)
  - Injection site discolouration [None]
  - Injection site haematoma [None]
  - Mouth swelling [None]
  - Angioedema [None]

NARRATIVE: CASE EVENT DATE: 20220324
